FAERS Safety Report 8226105-5 (Version None)
Quarter: 2012Q1

REPORT INFORMATION
  Report Type: 
  Country: None (occurrence: None)
  Receive Date: 20120307
  Receipt Date: 20090519
  Transmission Date: 20120608
  Serious: No
  Sender: FDA-Public Use
  Company Number: PHEH2009US05290

PATIENT
  Sex: Female

DRUGS (1)
  1. AFINITOR [Suspect]
     Dates: start: 20090515

REACTIONS (2)
  - NECK PAIN [None]
  - PAIN IN EXTREMITY [None]
